FAERS Safety Report 7431998-5 (Version None)
Quarter: 2011Q2

REPORT INFORMATION
  Report Type: 
  Country: None (occurrence: None)
  Receive Date: 20110419
  Receipt Date: 20110419
  Transmission Date: 20111010
  Serious: Yes (Other)
  Sender: FDA-Public Use
  Company Number: None

PATIENT
  Age: 39 Year
  Sex: Female
  Weight: 88.4514 kg

DRUGS (2)
  1. LAMOTRIGINE [Suspect]
     Indication: CONVULSION
     Dosage: 1 2 TIMES A DAY PO
     Route: 048
  2. LAMOTRIGINE [Suspect]
     Indication: CONVULSION
     Dosage: 1 2 TIMES A DAY PO
     Route: 048

REACTIONS (3)
  - PRODUCT TASTE ABNORMAL [None]
  - CONVULSION [None]
  - PRODUCT SUBSTITUTION ISSUE [None]
